FAERS Safety Report 21168527 (Version 1)
Quarter: 2022Q3

REPORT INFORMATION
  Report Type: Spontaneous
  Country: None (occurrence: CA)
  Receive Date: 20220803
  Receipt Date: 20220803
  Transmission Date: 20221027
  Serious: Yes (Hospitalization, Other)
  Sender: FDA-Public Use
  Company Number: CA-B.Braun Medical Inc.-2131498

PATIENT
  Age: 61 Year
  Sex: Female

DRUGS (25)
  1. DEXTROSE MONOHYDRATE\THEOPHYLLINE\THEOPHYLLINE ANHYDROUS [Suspect]
     Active Substance: DEXTROSE MONOHYDRATE\THEOPHYLLINE\THEOPHYLLINE ANHYDROUS
  2. AVELOX [Suspect]
     Active Substance: MOXIFLOXACIN HYDROCHLORIDE
  3. ACETYLCHOLINE CHLORIDE [Suspect]
     Active Substance: ACETYLCHOLINE CHLORIDE
  4. ARNUITY ELLIPTA [Suspect]
     Active Substance: FLUTICASONE FUROATE
  5. ATIVAN [Suspect]
     Active Substance: LORAZEPAM
  6. ATROVENT [Suspect]
     Active Substance: IPRATROPIUM BROMIDE
  7. CLONAZEPAM [Suspect]
     Active Substance: CLONAZEPAM
  8. COMBIVENT [Suspect]
     Active Substance: ALBUTEROL SULFATE\IPRATROPIUM BROMIDE
  9. DEXTROMETHORPHAN [Suspect]
     Active Substance: DEXTROMETHORPHAN
  10. ERGOCALCIFEROL [Suspect]
     Active Substance: ERGOCALCIFEROL
  11. HYDROMORPHONE HYDROCHLORIDE [Suspect]
     Active Substance: HYDROMORPHONE HYDROCHLORIDE
  12. ALBUTEROL\IPRATROPIUM BROMIDE [Suspect]
     Active Substance: ALBUTEROL\IPRATROPIUM BROMIDE
  13. LETROZOLE [Suspect]
     Active Substance: LETROZOLE
  14. MOMETASONE [Suspect]
     Active Substance: MOMETASONE
  15. MOXIFLOXACIN HYDROCHLORIDE [Suspect]
     Active Substance: MOXIFLOXACIN HYDROCHLORIDE
  16. MUCOMYST [Suspect]
     Active Substance: ACETYLCYSTEINE
  17. OMEPRAZOLE [Suspect]
     Active Substance: OMEPRAZOLE
  18. PREDNISONE [Suspect]
     Active Substance: PREDNISONE
  19. PULMICORT TURBUHALER [Suspect]
     Active Substance: BUDESONIDE
  20. ALBUTEROL [Suspect]
     Active Substance: ALBUTEROL
  21. SERTRALINE HYDROCHLORIDE [Suspect]
     Active Substance: SERTRALINE HYDROCHLORIDE
  22. TRELEGY ELLIPTA [Suspect]
     Active Substance: FLUTICASONE FUROATE\UMECLIDINIUM BROMIDE\VILANTEROL TRIFENATATE
  23. TYLENOL [Suspect]
     Active Substance: ACETAMINOPHEN
  24. UMECLIDINIUM BROMIDE\VILANTEROL TRIFENATATE [Suspect]
     Active Substance: UMECLIDINIUM BROMIDE\VILANTEROL TRIFENATATE
  25. UMECLIDINIUM BROMIDE\VILANTEROL TRIFENATATE [Suspect]
     Active Substance: UMECLIDINIUM BROMIDE\VILANTEROL TRIFENATATE

REACTIONS (30)
  - Anxiety [None]
  - Asthma [None]
  - Breast cancer [None]
  - Breast conserving surgery [None]
  - Chest discomfort [None]
  - Chronic obstructive pulmonary disease [None]
  - Cough [None]
  - Depression [None]
  - Dyspnoea [None]
  - Eosinophilia [None]
  - Full blood count abnormal [None]
  - Hypertension [None]
  - Loss of personal independence in daily activities [None]
  - Malaise [None]
  - Mental disorder [None]
  - Mental impairment [None]
  - Nasal congestion [None]
  - Obstruction [None]
  - Pneumonia [None]
  - Productive cough [None]
  - Respiratory disorder [None]
  - Rhinorrhoea [None]
  - Sinus disorder [None]
  - Sinus disorder [None]
  - Sinusitis [None]
  - Sleep disorder [None]
  - Sleep disorder due to a general medical condition [None]
  - Therapeutic product effect incomplete [None]
  - Tremor [None]
  - Wheezing [None]
